FAERS Safety Report 8346528-3 (Version None)
Quarter: 2012Q2

REPORT INFORMATION
  Report Type: 
  Country: None (occurrence: None)
  Receive Date: 20120509
  Receipt Date: 20120502
  Transmission Date: 20120825
  Serious: Yes (Other)
  Sender: FDA-Public Use
  Company Number: JP-ASTRAZENECA-2012SE28901

PATIENT
  Age: 85 Year
  Sex: Female
  Weight: 60 kg

DRUGS (3)
  1. BISOPROLOL FUMARATE [Concomitant]
     Indication: HYPERTENSION
     Route: 048
  2. FUROSEMIDE [Concomitant]
     Indication: HYPERTENSION
     Route: 048
  3. CANDESARTAN CILEXETIL [Suspect]
     Indication: HYPERTENSION
     Route: 048
     Dates: end: 20120417

REACTIONS (1)
  - RESPIRATORY DISORDER [None]
